FAERS Safety Report 19816443 (Version 2)
Quarter: 2022Q2

REPORT INFORMATION
  Report Type: Spontaneous
  Country: US (occurrence: None)
  Receive Date: 20210910
  Receipt Date: 20220426
  Transmission Date: 20220720
  Serious: Yes (Other)
  Sender: FDA-Public Use
  Company Number: 2021A710363

PATIENT
  Age: 53 Year
  Sex: Female
  Weight: 57.6 kg

DRUGS (43)
  1. NEXIUM [Suspect]
     Active Substance: ESOMEPRAZOLE MAGNESIUM
     Indication: Gastrooesophageal reflux disease
     Route: 048
     Dates: start: 2001, end: 2018
  2. NEXIUM [Suspect]
     Active Substance: ESOMEPRAZOLE MAGNESIUM
     Indication: Gastrooesophageal reflux disease
     Route: 048
     Dates: start: 1998, end: 2018
  3. PRILOSEC [Suspect]
     Active Substance: OMEPRAZOLE MAGNESIUM
     Indication: Gastrooesophageal reflux disease
     Route: 048
     Dates: start: 1998, end: 2018
  4. PRILOSEC [Suspect]
     Active Substance: OMEPRAZOLE MAGNESIUM
     Indication: Gastrooesophageal reflux disease
     Dosage: GENERIC
     Route: 065
     Dates: start: 20131230, end: 2020
  5. PREVACID [Suspect]
     Active Substance: LANSOPRAZOLE
     Indication: Gastrooesophageal reflux disease
     Route: 065
     Dates: start: 1998, end: 2018
  6. PROTONIX [Suspect]
     Active Substance: PANTOPRAZOLE SODIUM
     Indication: Gastrooesophageal reflux disease
     Route: 065
     Dates: start: 2000, end: 2018
  7. PROTONIX [Suspect]
     Active Substance: PANTOPRAZOLE SODIUM
     Indication: Gastrooesophageal reflux disease
     Route: 065
     Dates: start: 1998, end: 2018
  8. PROTONIX [Suspect]
     Active Substance: PANTOPRAZOLE SODIUM
     Indication: Gastrooesophageal reflux disease
     Dosage: GENERIC
     Route: 065
     Dates: start: 20160706, end: 2020
  9. FUROSEMIDE [Concomitant]
     Active Substance: FUROSEMIDE
     Indication: Diuretic therapy
     Dates: start: 20190501, end: 20200406
  10. ACYCLOVIR [Concomitant]
     Active Substance: ACYCLOVIR
     Indication: Infection
     Dates: start: 20160414, end: 20160606
  11. SULFAMETHOXAZOLE [Concomitant]
     Active Substance: SULFAMETHOXAZOLE
     Indication: Infection
     Dates: start: 20170809, end: 2018
  12. DOXYCYCLINE HYALITE [Concomitant]
     Indication: Infection
     Dates: start: 20200205
  13. ACETAMINOPHEN [Concomitant]
     Active Substance: ACETAMINOPHEN
     Indication: Pain
  14. ASPIRIN [Concomitant]
     Active Substance: ASPIRIN
     Indication: Pain
  15. GABAPENTIN [Concomitant]
     Active Substance: GABAPENTIN
  16. PREMARIN [Concomitant]
     Active Substance: ESTROGENS, CONJUGATED
  17. HYDROCHLOROTHIAZIDE [Concomitant]
     Active Substance: HYDROCHLOROTHIAZIDE
  18. MIRTAZAPINE [Concomitant]
     Active Substance: MIRTAZAPINE
  19. TRIAMCINOLONE [Concomitant]
     Active Substance: TRIAMCINOLONE
  20. ACETAMINOPHEN\HYDROCODONE BITARTRATE [Concomitant]
     Active Substance: ACETAMINOPHEN\HYDROCODONE BITARTRATE
  21. PROMETHAZINE [Concomitant]
     Active Substance: PROMETHAZINE HYDROCHLORIDE
  22. SYMBICORT [Concomitant]
     Active Substance: BUDESONIDE\FORMOTEROL FUMARATE DIHYDRATE
  23. BUPROPION [Concomitant]
     Active Substance: BUPROPION
  24. PROAIR HFA [Concomitant]
     Active Substance: ALBUTEROL SULFATE
  25. BACLOFEN [Concomitant]
     Active Substance: BACLOFEN
  26. CLINDAMYCIN [Concomitant]
     Active Substance: CLINDAMYCIN
  27. PREDNISONE [Concomitant]
     Active Substance: PREDNISONE
  28. CLONAZEPAM [Concomitant]
     Active Substance: CLONAZEPAM
  29. SULFAMETHOXAZOLE\TRIMETHOPRIM [Concomitant]
     Active Substance: SULFAMETHOXAZOLE\TRIMETHOPRIM
  30. HYDROXYZINE [Concomitant]
     Active Substance: HYDROXYZINE HYDROCHLORIDE
  31. LYRICA [Concomitant]
     Active Substance: PREGABALIN
  32. ATORVASTATIN [Concomitant]
     Active Substance: ATORVASTATIN
  33. QUETIAPINE [Concomitant]
     Active Substance: QUETIAPINE
  34. BETAMETHASONE [Concomitant]
     Active Substance: BETAMETHASONE
  35. ALBUTEROL [Concomitant]
     Active Substance: ALBUTEROL
  36. LORATADINE [Concomitant]
     Active Substance: LORATADINE
  37. METOPROLOL [Concomitant]
     Active Substance: METOPROLOL
  38. LIPITOR [Concomitant]
     Active Substance: ATORVASTATIN CALCIUM
  39. VITAMIN B [Concomitant]
     Active Substance: VITAMIN B
  40. ALLEGRA [Concomitant]
     Active Substance: FEXOFENADINE HYDROCHLORIDE
  41. OXYCONTIN [Concomitant]
     Active Substance: OXYCODONE HYDROCHLORIDE
  42. ROXICODONE [Concomitant]
     Active Substance: OXYCODONE HYDROCHLORIDE
  43. SPIRIVA [Concomitant]
     Active Substance: TIOTROPIUM BROMIDE MONOHYDRATE

REACTIONS (1)
  - Chronic kidney disease [Not Recovered/Not Resolved]

NARRATIVE: CASE EVENT DATE: 20150101
